FAERS Safety Report 19417869 (Version 1)
Quarter: 2021Q2

REPORT INFORMATION
  Report Type: Spontaneous
  Country: JP (occurrence: JP)
  Receive Date: 20210615
  Receipt Date: 20210615
  Transmission Date: 20210717
  Serious: Yes (Death, Life-Threatening, Hospitalization, Other)
  Sender: FDA-Public Use
  Company Number: JP-ACCORD-227570

PATIENT
  Age: 84 Year
  Sex: Female
  Weight: 30 kg

DRUGS (3)
  1. METHOTREXATE. [Suspect]
     Active Substance: METHOTREXATE
     Indication: RHEUMATOID ARTHRITIS
  2. CELECOXIB. [Concomitant]
     Active Substance: CELECOXIB
     Indication: RHEUMATOID ARTHRITIS
  3. METHOTREXATE. [Suspect]
     Active Substance: METHOTREXATE
     Indication: RHEUMATOID ARTHRITIS

REACTIONS (13)
  - Asthenia [Fatal]
  - Stomatitis [Fatal]
  - Cerebral infarction [Fatal]
  - Myelosuppression [Fatal]
  - Cardiac failure [Fatal]
  - Leukopenia [Fatal]
  - Gelatinous transformation of the bone marrow [Fatal]
  - Mouth ulceration [Fatal]
  - Respiratory failure [Fatal]
  - Hypochromic anaemia [Fatal]
  - Pleural effusion [Fatal]
  - Malnutrition [Fatal]
  - Bicytopenia [Fatal]
